FAERS Safety Report 8064431-3 (Version None)
Quarter: 2012Q1

REPORT INFORMATION
  Report Type: 
  Country: None (occurrence: None)
  Receive Date: 20120123
  Receipt Date: 20120118
  Transmission Date: 20120608
  Serious: Yes (Other)
  Sender: FDA-Public Use
  Company Number: US-ABBOTT-09P-163-0612993-00

PATIENT
  Sex: Male
  Weight: 76.272 kg

DRUGS (1)
  1. HUMIRA [Suspect]
     Indication: CROHN'S DISEASE
     Route: 058
     Dates: start: 20090101, end: 20111201

REACTIONS (6)
  - ABDOMINAL HERNIA [None]
  - INJECTION SITE PAIN [None]
  - CONSTIPATION [None]
  - INTESTINAL OBSTRUCTION [None]
  - DISCOMFORT [None]
  - ABDOMINAL PAIN [None]
